FAERS Safety Report 19479887 (Version 5)
Quarter: 2023Q4

REPORT INFORMATION
  Report Type: Spontaneous
  Country: US (occurrence: US)
  Receive Date: 20210701
  Receipt Date: 20231128
  Transmission Date: 20240110
  Serious: Yes (Hospitalization, Other)
  Sender: FDA-Public Use
  Company Number: US-JNJFOC-A-US2020-201870

PATIENT
  Sex: Female
  Weight: 79.365 kg

DRUGS (4)
  1. UPTRAVI [Suspect]
     Active Substance: SELEXIPAG
     Indication: Pulmonary arterial hypertension
     Dosage: 1600 MCG, BID
     Route: 048
  2. UPTRAVI [Suspect]
     Active Substance: SELEXIPAG
     Indication: Pulmonary hypertension
     Route: 048
  3. AMLODIPINE [Concomitant]
     Active Substance: AMLODIPINE BESYLATE
  4. ELIQUIS [Concomitant]
     Active Substance: APIXABAN

REACTIONS (16)
  - Hospitalisation [Unknown]
  - Renal impairment [Unknown]
  - Cataract [Unknown]
  - Dialysis [Recovered/Resolved]
  - Fluid retention [Unknown]
  - Fall [Unknown]
  - Syncope [Unknown]
  - Iron deficiency [Unknown]
  - Vertigo [Not Recovered/Not Resolved]
  - Atrial fibrillation [Unknown]
  - Wrong technique in product usage process [Unknown]
  - Asthenia [Unknown]
  - Bedridden [Unknown]
  - Dysstasia [Unknown]
  - Gastrointestinal disorder [Unknown]
  - Epistaxis [Unknown]

NARRATIVE: CASE EVENT DATE: 20190101
